FAERS Safety Report 8841119 (Version 1)
Quarter: 2012Q4

REPORT INFORMATION
  Report Type: 
  Country: US (occurrence: US)
  Receive Date: 20121015
  Receipt Date: 20121015
  Transmission Date: 20130627
  Serious: Yes (Disabling)
  Sender: FDA-Public Use
  Company Number: US-MYLANLABS-2012S1020581

PATIENT
  Age: 32 Year
  Sex: Male

DRUGS (11)
  1. ATORVASTATIN [Suspect]
     Indication: HYPERCHOLESTEROLAEMIA
     Dosage: every evening
     Route: 048
  2. BUDESONIDE [Concomitant]
     Indication: CROHN^S DISEASE
     Dosage: 12 mg/day for maintenance of remission
     Route: 048
  3. CETIRIZINE W/PSEUDOEPHEDRINE [Concomitant]
     Indication: RHINITIS ALLERGIC
     Dosage: cetirizine 5mg/pseudoephedrine 120mg/day as needed
     Route: 048
  4. DIARSED                            /00858501/ [Concomitant]
     Indication: DIARRHOEA
     Dosage: diphenoxylate 2.5-5mg/atropine 0.025-0.050mg as needed
     Route: 048
  5. FAMOTIDINE [Concomitant]
     Route: 048
  6. HYOSCYAMINE [Concomitant]
     Indication: GASTROINTESTINAL PAIN
     Dosage: 0.125-0.250mg 3 times/day as needed
     Route: 048
  7. PREDNISONE [Concomitant]
     Indication: CROHN^S DISEASE
     Dosage: 5-60 mg/day as needed for flare-ups
     Route: 048
  8. MOXIFLOXACIN [Concomitant]
     Indication: CROHN^S DISEASE
     Dosage: 400 mg/day as needed for flare-ups
     Route: 048
  9. METRONIDAZOLE [Concomitant]
     Indication: CROHN^S DISEASE
     Dosage: as needed for flare-ups
     Route: 048
  10. BUDESONIDE [Concomitant]
     Indication: RHINITIS ALLERGIC
     Dosage: 2 puffs/day to each nostril
     Route: 055
  11. CO-DIOVAN [Concomitant]
     Indication: HYPERTENSION
     Dosage: valsartan 160mg/hydrochlorothiazide 12.5mg once/day
     Route: 048

REACTIONS (2)
  - Deafness neurosensory [Not Recovered/Not Resolved]
  - Tinnitus [Unknown]
